FAERS Safety Report 9806034 (Version 1)
Quarter: 2014Q1

REPORT INFORMATION
  Report Type: Spontaneous
  Country: BR (occurrence: BR)
  Receive Date: 20140109
  Receipt Date: 20140109
  Transmission Date: 20141002
  Serious: Yes (Hospitalization, Congenital Anomaly, Other)
  Sender: FDA-Public Use
  Company Number: BR-009507513-1401BRA002462

PATIENT
  Age: 0 Day
  Sex: 0
  Weight: 2.26 kg

DRUGS (2)
  1. MERCILON CONTI [Suspect]
     Indication: CONTRACEPTION
     Dosage: 1 DF, QD
     Route: 064
     Dates: start: 2008, end: 2009
  2. MERCILON CONTI [Suspect]
     Dosage: 1 DF, QD
     Route: 063
     Dates: start: 201009

REACTIONS (5)
  - Trisomy 21 [Not Recovered/Not Resolved]
  - Jaundice [Recovered/Resolved]
  - Low birth weight baby [Unknown]
  - Exposure during breast feeding [Unknown]
  - Foetal exposure during pregnancy [Unknown]
